FAERS Safety Report 4313156-6 (Version None)
Quarter: 2004Q1

REPORT INFORMATION
  Report Type: 
  Country: None (occurrence: None)
  Receive Date: 20040304
  Receipt Date: 20040218
  Transmission Date: 20041129
  Serious: Yes (Other)
  Sender: FDA-Public Use
  Company Number: EWC040238115

PATIENT
  Age: 4 Month
  Sex: Male

DRUGS (1)
  1. PANACEF-.(CEFACLOR) [Suspect]
     Indication: RESPIRATORY TRACT INFECTION
     Dosage: 30 MG DAY
     Dates: start: 20040207, end: 20040209

REACTIONS (3)
  - AGITATION [None]
  - RESTLESSNESS [None]
  - SLEEP TERROR [None]
